FAERS Safety Report 11512658 (Version 3)
Quarter: 2016Q3

REPORT INFORMATION
  Report Type: Spontaneous
  Country: GB (occurrence: GB)
  Receive Date: 20150916
  Receipt Date: 20160728
  Transmission Date: 20161109
  Serious: Yes (Hospitalization)
  Sender: FDA-Public Use
  Company Number: GB-TEVA-592412ACC

PATIENT
  Age: 79 Year
  Sex: Female
  Weight: 68 kg

DRUGS (18)
  1. PREDNISOLONE. [Suspect]
     Active Substance: PREDNISOLONE
     Indication: DIFFUSE LARGE B-CELL LYMPHOMA
     Dosage: 5 MILLIGRAM DAILY;
     Route: 048
     Dates: start: 20150714, end: 20150714
  2. CYCLOPHOSPHAMIDE. [Concomitant]
     Active Substance: CYCLOPHOSPHAMIDE
     Indication: DIFFUSE LARGE B-CELL LYMPHOMA
     Dosage: 1300 MILLIGRAM DAILY; ONCE ON DAY 1 OF EVERY 21 DAY CYCLE
     Route: 042
     Dates: start: 20150217, end: 20150708
  3. GLICLAZIDE [Concomitant]
     Active Substance: GLICLAZIDE
     Indication: DIABETES MELLITUS
     Dosage: 30 MILLIGRAM DAILY;
     Route: 065
     Dates: start: 20070731, end: 20150716
  4. METFORMIN [Concomitant]
     Active Substance: METFORMIN HYDROCHLORIDE
     Indication: DIABETES MELLITUS
     Dosage: 1000 MILLIGRAM DAILY;
     Route: 065
     Dates: start: 20130918, end: 20150715
  5. ACICLOVIR [Concomitant]
     Active Substance: ACYCLOVIR
     Indication: ANTIVIRAL PROPHYLAXIS
     Dosage: 600 MILLIGRAM DAILY;
     Route: 065
     Dates: start: 20150217, end: 20150716
  6. FERROUS FUMARATE [Concomitant]
     Active Substance: FERROUS FUMARATE
     Indication: ANAEMIA
     Dosage: 420 MILLIGRAM DAILY;
     Route: 048
     Dates: end: 20150716
  7. RITUXIMAB [Concomitant]
     Active Substance: RITUXIMAB
     Indication: DIFFUSE LARGE B-CELL LYMPHOMA
     Dosage: ONCE ON DAY 1 OF EVERY 21 DAY CYCLE
     Route: 042
     Dates: start: 20150217, end: 20150708
  8. THYROXINE [Concomitant]
     Active Substance: LEVOTHYROXINE
     Indication: HYPOTHYROIDISM
     Dosage: 100 MICROGRAM DAILY;
     Route: 065
     Dates: start: 20070214, end: 20150716
  9. SULFAMETHOXAZOLE [Concomitant]
     Active Substance: SULFAMETHOXAZOLE
     Indication: ANTIBIOTIC PROPHYLAXIS
     Dosage: 480 MG ONCE DAILY THREE TIMES WEEKLY
     Route: 065
     Dates: start: 20150217, end: 20150715
  10. VINCRISTINE [Concomitant]
     Active Substance: VINCRISTINE
     Indication: DIFFUSE LARGE B-CELL LYMPHOMA
     Dosage: ONCE ON DAY 1 OF EVERY 21 DAY CYCLE
     Route: 042
     Dates: start: 20150217, end: 20150708
  11. PREDNISOLONE. [Suspect]
     Active Substance: PREDNISOLONE
     Indication: DIFFUSE LARGE B-CELL LYMPHOMA
     Route: 048
     Dates: start: 20150713, end: 20150713
  12. GRANULOCYTE-COLONY STIMULATING FACTOR [Concomitant]
     Active Substance: FILGRASTIM
     Indication: PROPHYLAXIS
     Dosage: 300 MICROGRAM DAILY;
     Route: 058
     Dates: start: 20150220, end: 20150715
  13. INOTUZUMAB OZOGAMICIN [Concomitant]
     Active Substance: INOTUZUMAB OZOGAMICIN
     Indication: DIFFUSE LARGE B-CELL LYMPHOMA
     Dosage: FORM: POWDER FOR SOLUTION FOR INJECTION; ONCE ON DAY 2 OF EVERY 21 DAY CYCLE
     Route: 042
     Dates: start: 20150218, end: 20150428
  14. PREDNISOLONE. [Suspect]
     Active Substance: PREDNISOLONE
     Indication: DIFFUSE LARGE B-CELL LYMPHOMA
     Dosage: 100 MILLIGRAM DAILY;
     Route: 048
     Dates: start: 20150708, end: 20150712
  15. INSULIN [Concomitant]
     Active Substance: INSULIN NOS
     Indication: DIABETES MELLITUS
     Dosage: DOSE:18 UNIT(S)
     Route: 058
     Dates: start: 20110211, end: 20150716
  16. LISINOPRIL. [Concomitant]
     Active Substance: LISINOPRIL
     Indication: HYPERTENSION
     Dosage: 20 MILLIGRAM DAILY;
     Route: 065
     Dates: start: 20070214, end: 20150716
  17. TRIMETHOPRIM. [Concomitant]
     Active Substance: TRIMETHOPRIM
     Indication: ANTIBIOTIC PROPHYLAXIS
     Dosage: 480 MG ONCE DAILY THREE TIMES WEEKLY
     Route: 065
     Dates: start: 20150217, end: 20150715
  18. LANSOPRAZOLE. [Concomitant]
     Active Substance: LANSOPRAZOLE
     Indication: PROPHYLAXIS
     Dosage: 30 MILLIGRAM DAILY;
     Route: 065
     Dates: start: 20080530, end: 20150716

REACTIONS (10)
  - Blood creatinine increased [Unknown]
  - Confusional state [Recovered/Resolved]
  - Platelet count decreased [Unknown]
  - Fatigue [Recovered/Resolved]
  - Withdrawal syndrome [Unknown]
  - Malaise [Unknown]
  - Anaemia [Unknown]
  - Blood bilirubin [Unknown]
  - Insomnia [Recovered/Resolved]
  - Pyrexia [Unknown]

NARRATIVE: CASE EVENT DATE: 20150713
